FAERS Safety Report 5030812-5 (Version None)
Quarter: 2006Q2

REPORT INFORMATION
  Report Type: 
  Country: None (occurrence: None)
  Receive Date: 20060614
  Receipt Date: 20060530
  Transmission Date: 20061013
  Serious: Yes (Death)
  Sender: FDA-Public Use
  Company Number: 2006001118

PATIENT
  Sex: Male

DRUGS (1)
  1. TARCEVA [Suspect]
     Indication: SQUAMOUS CELL CARCINOMA
     Dosage: ORAL
     Route: 048
     Dates: start: 20060315

REACTIONS (4)
  - DYSPNOEA [None]
  - ORAL CANDIDIASIS [None]
  - PRODUCTIVE COUGH [None]
  - THROAT TIGHTNESS [None]
